FAERS Safety Report 6657624-0 (Version None)
Quarter: 2010Q1

REPORT INFORMATION
  Report Type: 
  Country: None (occurrence: None)
  Receive Date: 20100330
  Receipt Date: 20100316
  Transmission Date: 20100710
  Serious: Yes (Other)
  Sender: FDA-Public Use
  Company Number: US-BAYER-201016812NA

PATIENT
  Age: 23 Year
  Sex: Female

DRUGS (1)
  1. MIRENA [Suspect]
     Indication: DRUG USE FOR UNKNOWN INDICATION
     Dosage: FREQUENCY: CONTINUOUS
     Route: 015
     Dates: start: 20090801

REACTIONS (3)
  - ABDOMINAL PAIN LOWER [None]
  - ECTOPIC PREGNANCY WITH INTRAUTERINE DEVICE [None]
  - VAGINAL HAEMORRHAGE [None]
